FAERS Safety Report 4288916-0 (Version None)
Quarter: 2004Q1

REPORT INFORMATION
  Report Type: 
  Country: None (occurrence: None)
  Receive Date: 20040205
  Receipt Date: 20030114
  Transmission Date: 20041129
  Serious: Yes (Other)
  Sender: FDA-Public Use
  Company Number: 30012000-C558536-1

PATIENT
  Sex: Male
  Weight: 83.9154 kg

DRUGS (1)
  1. DIANEAL LOW CALCIUM W/ DEXTROSE 2.5% [Suspect]
     Indication: PERITONEAL DIALYSIS
     Dosage: 2.5% DEXTROSE, INTRAPERITONEAL
     Route: 033

REACTIONS (1)
  - PERITONITIS BACTERIAL [None]
